FAERS Safety Report 6417756-9 (Version None)
Quarter: 2009Q4

REPORT INFORMATION
  Report Type: 
  Country: None (occurrence: None)
  Receive Date: 20091028
  Receipt Date: 20091009
  Transmission Date: 20100525
  Serious: No
  Sender: FDA-Public Use
  Company Number: US-BAYER-200915290BCC

PATIENT
  Age: 17 Year
  Sex: Male
  Weight: 77 kg

DRUGS (3)
  1. ALEVE [Suspect]
     Indication: SELF INJURIOUS BEHAVIOUR
     Dosage: TOTAL DAILY DOSE: 1980 MG  UNIT DOSE: 220 MG
     Route: 048
     Dates: start: 20091008
  2. WELLBUTRIN [Concomitant]
     Route: 065
  3. REMERON [Concomitant]
     Route: 065

REACTIONS (1)
  - VOMITING [None]
